FAERS Safety Report 17711685 (Version 1)
Quarter: 2020Q2

REPORT INFORMATION
  Report Type: Spontaneous
  Country: CA (occurrence: CA)
  Receive Date: 20200425
  Receipt Date: 20200425
  Transmission Date: 20200714
  Serious: Yes (Other)
  Sender: FDA-Public Use
  Company Number: None

PATIENT
  Age: 49 Year
  Weight: 63.9 kg

DRUGS (12)
  1. AIMOVIG [Suspect]
     Active Substance: ERENUMAB-AOOE
     Indication: MIGRAINE
     Dosage: ?          QUANTITY:1 PRE-FILLED INJ PEN;OTHER FREQUENCY:ONCE A MONTH;?
     Route: 058
     Dates: start: 20200414, end: 20200414
  2. CLONAZEPAM. [Concomitant]
     Active Substance: CLONAZEPAM
  3. SUBLINOX [Concomitant]
     Active Substance: ZOLPIDEM TARTRATE
  4. MULTIVITAMIN WITH MINERALS [Concomitant]
     Active Substance: MINERALS\VITAMINS
  5. OMEGA 3 [Concomitant]
     Active Substance: OMEGA-3 FATTY ACIDS
  6. PROBIOTIC [Concomitant]
     Active Substance: PROBIOTICS NOS
  7. PREVACID [Concomitant]
     Active Substance: LANSOPRAZOLE
  8. DOMPERIDONE [Concomitant]
     Active Substance: DOMPERIDONE
  9. ADVIL [Concomitant]
     Active Substance: IBUPROFEN
  10. TOPAMAX [Concomitant]
     Active Substance: TOPIRAMATE
  11. TYLENOL [Concomitant]
     Active Substance: ACETAMINOPHEN
  12. ROBAXACET [Concomitant]
     Active Substance: ACETAMINOPHEN\METHOCARBAMOL

REACTIONS (7)
  - Insomnia [None]
  - Restlessness [None]
  - Chest discomfort [None]
  - Irritability [None]
  - Panic attack [None]
  - Disturbance in attention [None]
  - Muscle tightness [None]

NARRATIVE: CASE EVENT DATE: 20200416
